FAERS Safety Report 12484739 (Version 1)
Quarter: 2016Q2

REPORT INFORMATION
  Report Type: Spontaneous
  Country: US (occurrence: US)
  Receive Date: 20160621
  Receipt Date: 20160621
  Transmission Date: 20160815
  Serious: Yes (Other)
  Sender: FDA-Public Use
  Company Number: US-BAUSCH-BL-2016-009278

PATIENT
  Age: 81 Year
  Sex: Male

DRUGS (1)
  1. PROVENGE [Suspect]
     Active Substance: SIPULEUCEL-T
     Indication: PROSTATE CANCER
     Route: 042

REACTIONS (3)
  - Fall [Unknown]
  - Blood pressure decreased [Unknown]
  - Mononuclear cell count abnormal [Unknown]

NARRATIVE: CASE EVENT DATE: 2016
